FAERS Safety Report 14583190 (Version 2)
Quarter: 2018Q2

REPORT INFORMATION
  Report Type: Report from Study
  Country: US (occurrence: US)
  Receive Date: 20180228
  Receipt Date: 20180416
  Transmission Date: 20180711
  Serious: Yes (Hospitalization)
  Sender: FDA-Public Use
  Company Number: US-TARO-2018TAR00154

PATIENT
  Age: 53 Year
  Sex: Male
  Weight: 104.76 kg

DRUGS (3)
  1. BLINDED PLACEBO [Suspect]
     Active Substance: INVESTIGATIONAL PRODUCT
     Indication: TINEA PEDIS
     Dosage: 1 DOSAGE UNITS (APPLICATION), 1X/DAY
     Route: 061
     Dates: start: 20180105, end: 20180118
  2. BLINDED NAFTIFINE HCL GEL 2% [Suspect]
     Active Substance: NAFTIFINE HYDROCHLORIDE
     Indication: TINEA PEDIS
     Dosage: 1 DOSAGE UNITS (APPLICATION), 1X/DAY
     Route: 061
     Dates: start: 20180105, end: 20180118
  3. NAFTIN [Suspect]
     Active Substance: NAFTIFINE HYDROCHLORIDE
     Indication: TINEA PEDIS
     Dosage: 1 DOSAGE UNITS (APPLICATION), 1X/DAY
     Route: 061
     Dates: start: 20180105, end: 20180118

REACTIONS (2)
  - Nausea [Recovered/Resolved]
  - Haematemesis [Recovered/Resolved]

NARRATIVE: CASE EVENT DATE: 20180213
